FAERS Safety Report 7386483-6 (Version None)
Quarter: 2011Q1

REPORT INFORMATION
  Report Type: 
  Country: None (occurrence: None)
  Receive Date: 20110329
  Receipt Date: 20110329
  Transmission Date: 20110831
  Serious: Yes (Hospitalization)
  Sender: FDA-Public Use
  Company Number: None

PATIENT
  Sex: Male
  Weight: 73.1 kg

DRUGS (2)
  1. CETUXIMAB CETUXIMAB, 935 MG, INTRAVENOUS, [Suspect]
     Indication: HEAD AND NECK CANCER
     Dosage: CETUXIMAB, 935 MG Q2 WEEKS IV DRIP
     Route: 041
     Dates: start: 20100315, end: 20100315
  2. REVLIMID [Concomitant]

REACTIONS (1)
  - NEURALGIA [None]
